FAERS Safety Report 20643054 (Version 5)
Quarter: 2024Q3

REPORT INFORMATION
  Report Type: Spontaneous
  Country: CA (occurrence: None)
  Receive Date: 20220328
  Receipt Date: 20240829
  Transmission Date: 20241016
  Serious: Yes (Other)
  Sender: ORION
  Company Number: CA-AMGEN-CANSP2022047874

PATIENT
  Age: 42 Year
  Sex: Female
  Weight: 81 kg

DRUGS (72)
  1. METHOTREXATE [Suspect]
     Active Substance: METHOTREXATE
     Indication: Rheumatoid arthritis
  2. METHOTREXATE [Suspect]
     Active Substance: METHOTREXATE
  3. METHOTREXATE [Suspect]
     Active Substance: METHOTREXATE
  4. ENBREL [Suspect]
     Active Substance: ETANERCEPT
     Indication: Rheumatoid arthritis
  5. ACETAMINOPHEN [Suspect]
     Active Substance: ACETAMINOPHEN
     Indication: Product used for unknown indication
  6. ACTEMRA [Suspect]
     Active Substance: TOCILIZUMAB
     Indication: Product used for unknown indication
  7. ACTEMRA [Suspect]
     Active Substance: TOCILIZUMAB
  8. CIMZIA [Suspect]
     Active Substance: CERTOLIZUMAB PEGOL
     Indication: Rheumatoid arthritis
  9. CIMZIA [Suspect]
     Active Substance: CERTOLIZUMAB PEGOL
  10. CIMZIA [Suspect]
     Active Substance: CERTOLIZUMAB PEGOL
  11. CIMZIA [Suspect]
     Active Substance: CERTOLIZUMAB PEGOL
  12. CIMZIA [Suspect]
     Active Substance: CERTOLIZUMAB PEGOL
  13. LEFLUNOMIDE [Suspect]
     Active Substance: LEFLUNOMIDE
     Indication: Product used for unknown indication
  14. ORENCIA [Suspect]
     Active Substance: ABATACEPT
     Indication: Rheumatoid arthritis
  15. ORENCIA [Suspect]
     Active Substance: ABATACEPT
  16. ORENCIA [Suspect]
     Active Substance: ABATACEPT
  17. ORENCIA [Suspect]
     Active Substance: ABATACEPT
  18. ORENCIA [Suspect]
     Active Substance: ABATACEPT
  19. OXYCODONE [Suspect]
     Active Substance: OXYCODONE
     Indication: Product used for unknown indication
  20. OXYCODONE TEREPHTHALATE [Suspect]
     Active Substance: OXYCODONE TEREPHTHALATE
     Indication: Product used for unknown indication
  21. PERIOGARD [Suspect]
     Active Substance: CHLORHEXIDINE GLUCONATE
     Indication: Product used for unknown indication
  22. PERIOGARD [Suspect]
     Active Substance: CHLORHEXIDINE GLUCONATE
  23. PERIOGARD [Suspect]
     Active Substance: CHLORHEXIDINE GLUCONATE
  24. SIMPONI [Suspect]
     Active Substance: GOLIMUMAB
     Indication: Product used for unknown indication
  25. SIMPONI [Suspect]
     Active Substance: GOLIMUMAB
  26. ARAVA [Suspect]
     Active Substance: LEFLUNOMIDE
     Indication: Product used for unknown indication
  27. ARAVA [Suspect]
     Active Substance: LEFLUNOMIDE
  28. CHLORAPREP ONE-STEP [Suspect]
     Active Substance: CHLORHEXIDINE GLUCONATE\ISOPROPYL ALCOHOL
     Indication: Product used for unknown indication
  29. CHLORHEXIDINE GLUCONATE [Suspect]
     Active Substance: CHLORHEXIDINE GLUCONATE
     Indication: Product used for unknown indication
  30. CHLORHEXIDINE GLUCONATE [Suspect]
     Active Substance: CHLORHEXIDINE GLUCONATE
  31. ALFACALCIDOL [Suspect]
     Active Substance: ALFACALCIDOL
     Indication: Product used for unknown indication
  32. CHLORHEXIDINE [Suspect]
     Active Substance: CHLORHEXIDINE
     Indication: Rheumatoid arthritis
  33. CHLORHEXIDINE [Suspect]
     Active Substance: CHLORHEXIDINE
  34. SULFAMETHOXAZOLE AND TRIMETHOPRIM [Suspect]
     Active Substance: SULFAMETHOXAZOLE\TRIMETHOPRIM
     Indication: Product used for unknown indication
  35. ACETAMINOPHEN\OXYCODONE HYDROCHLORIDE [Suspect]
     Active Substance: ACETAMINOPHEN\OXYCODONE HYDROCHLORIDE
     Indication: Product used for unknown indication
  36. CHOLECALCIFEROL [Suspect]
     Active Substance: CHOLECALCIFEROL
     Indication: Product used for unknown indication
  37. CETYLPYRIDINIUM CHLORIDE\CHLORHEXIDINE GLUCONATE [Suspect]
     Active Substance: CETYLPYRIDINIUM CHLORIDE\CHLORHEXIDINE GLUCONATE
     Indication: Product used for unknown indication
  38. ERGOCALCIFEROL [Concomitant]
     Active Substance: ERGOCALCIFEROL
  39. HYDROXYCHLOROQUINE [Concomitant]
     Active Substance: HYDROXYCHLOROQUINE
  40. HYDROXYCHLOROQUINE [Concomitant]
     Active Substance: HYDROXYCHLOROQUINE
  41. IBUPROFEN [Concomitant]
     Active Substance: IBUPROFEN
  42. PANTOPRAZOLE [Concomitant]
     Active Substance: PANTOPRAZOLE
  43. PREDNISONE [Concomitant]
     Active Substance: PREDNISONE
  44. TYLENOL [Concomitant]
     Active Substance: ACETAMINOPHEN
  45. ALBUTEROL SULFATE [Concomitant]
     Active Substance: ALBUTEROL SULFATE
  46. ALBUTEROL SULFATE [Concomitant]
     Active Substance: ALBUTEROL SULFATE
  47. VITAMIN C [Concomitant]
     Active Substance: ASCORBIC ACID
  48. CHOLECALCIFEROL [Concomitant]
     Active Substance: CHOLECALCIFEROL
  49. DESOGESTREL\ETHINYL ESTRADIOL [Concomitant]
     Active Substance: DESOGESTREL\ETHINYL ESTRADIOL
     Dosage: DESOGESTREL 150 A MU G + ETHINYLESTRADIOL 30 A MU G
  50. IMOVANE [Concomitant]
     Active Substance: ZOPICLONE
  51. PLAQUENIL [Concomitant]
     Active Substance: HYDROXYCHLOROQUINE SULFATE
  52. UBIDECARENONE [Concomitant]
     Active Substance: UBIDECARENONE
  53. CETIRIZINE [Concomitant]
     Active Substance: CETIRIZINE HYDROCHLORIDE
  54. HYDROXYCHLOROQUINE SULFATE [Concomitant]
     Active Substance: HYDROXYCHLOROQUINE SULFATE
  55. ZOPICLONE [Concomitant]
     Active Substance: ZOPICLONE
  56. ZOPICLONE [Concomitant]
     Active Substance: ZOPICLONE
     Route: 065
  57. OMEGA 3 [Concomitant]
     Active Substance: CAPSAICIN
  58. OMEGA 3 [Concomitant]
     Active Substance: CAPSAICIN
  59. CETIRIZINE HYDROCHLORIDE [Concomitant]
     Active Substance: CETIRIZINE HYDROCHLORIDE
  60. CETIRIZINE HYDROCHLORIDE [Concomitant]
     Active Substance: CETIRIZINE HYDROCHLORIDE
  61. PANTOPRAZOLE SODIUM [Concomitant]
     Active Substance: PANTOPRAZOLE SODIUM
  62. PANTOPRAZOLE SODIUM [Concomitant]
     Active Substance: PANTOPRAZOLE SODIUM
  63. ALBUTEROL [Concomitant]
     Active Substance: ALBUTEROL
  64. ALBUTEROL [Concomitant]
     Active Substance: ALBUTEROL
  65. PANTOPRAZOLE SODIUM ANHYDROUS [Concomitant]
     Active Substance: PANTOPRAZOLE SODIUM ANHYDROUS
  66. FISH OIL [Concomitant]
     Active Substance: FISH OIL
  67. PANTOPRAZOLE SODIUM [Concomitant]
     Active Substance: PANTOPRAZOLE SODIUM
  68. CETIRIZINE HYDROCHLORIDE [Concomitant]
     Active Substance: CETIRIZINE HYDROCHLORIDE
  69. ZOPICLONE [Concomitant]
     Active Substance: ZOPICLONE
  70. ASCORBIC ACID [Concomitant]
     Active Substance: ASCORBIC ACID
  71. MARVELON [Concomitant]
     Active Substance: DESOGESTREL\ETHINYL ESTRADIOL
  72. DESOGESTREL AND ETHINYL ESTRADIOL [Concomitant]
     Active Substance: DESOGESTREL\ETHINYL ESTRADIOL

REACTIONS (44)
  - Drug ineffective [Unknown]
  - Therapeutic product effect decreased [Unknown]
  - Contraindicated product administered [Unknown]
  - Abdominal pain upper [Unknown]
  - Asthenia [Unknown]
  - Body temperature increased [Unknown]
  - Ear pain [Unknown]
  - Insomnia [Unknown]
  - Urticaria [Unknown]
  - Pruritus [Unknown]
  - Rash [Unknown]
  - Headache [Unknown]
  - Lower respiratory tract infection [Unknown]
  - Back pain [Unknown]
  - Joint swelling [Unknown]
  - Muscle spasticity [Unknown]
  - Night sweats [Unknown]
  - Respiratory disorder [Unknown]
  - Vomiting [Unknown]
  - Blister [Unknown]
  - Confusional state [Unknown]
  - Ill-defined disorder [Unknown]
  - Hypersensitivity [Unknown]
  - Gastrointestinal disorder [Unknown]
  - Irritable bowel syndrome [Unknown]
  - Muscle injury [Unknown]
  - Sleep disorder [Unknown]
  - Folliculitis [Unknown]
  - Swelling [Unknown]
  - Stomatitis [Unknown]
  - Impaired healing [Unknown]
  - Peripheral swelling [Unknown]
  - Dyspnoea [Unknown]
  - Pain [Unknown]
  - Diarrhoea [Unknown]
  - Arthralgia [Unknown]
  - Pyrexia [Unknown]
  - Fatigue [Unknown]
  - Weight increased [Unknown]
  - Sinusitis [Unknown]
  - Infection [Unknown]
  - Nasopharyngitis [Unknown]
  - Sleep disorder due to general medical condition, insomnia type [Unknown]
  - Contusion [Unknown]
